FAERS Safety Report 4543010-6 (Version None)
Quarter: 2005Q1

REPORT INFORMATION
  Report Type: 
  Country: None (occurrence: None)
  Receive Date: 20050103
  Receipt Date: 20041223
  Transmission Date: 20050727
  Serious: Yes (Disabling, Other)
  Sender: FDA-Public Use
  Company Number: DK-JNJFOC-20041206719

PATIENT
  Age: 45 Year
  Sex: Female
  Weight: 71 kg

DRUGS (4)
  1. REMICADE [Suspect]
     Route: 042
  2. TODOLAC [Suspect]
     Route: 049
  3. ACETAMINOPHEN [Concomitant]
     Route: 065
  4. NOBLIGAN [Concomitant]
     Route: 065

REACTIONS (3)
  - BARTHOLINITIS [None]
  - CYSTITIS NONINFECTIVE [None]
  - MIGRAINE [None]
